FAERS Safety Report 6886466-6 (Version None)
Quarter: 2010Q3

REPORT INFORMATION
  Report Type: 
  Country: None (occurrence: None)
  Receive Date: 20100729
  Receipt Date: 20090526
  Transmission Date: 20110219
  Serious: Yes (Hospitalization)
  Sender: FDA-Public Use
  Company Number: US-PFIZER INC-2009197091

PATIENT
  Age: 73 Year
  Sex: Female

DRUGS (2)
  1. CELEBREX [Suspect]
  2. ACETYLSALICYLIC ACID [Concomitant]

REACTIONS (1)
  - GASTRIC ULCER HAEMORRHAGE [None]
